FAERS Safety Report 7690954-2 (Version None)
Quarter: 2011Q3

REPORT INFORMATION
  Report Type: 
  Country: None (occurrence: None)
  Receive Date: 20110812
  Receipt Date: 20110728
  Transmission Date: 20111222
  Serious: Yes (Hospitalization)
  Sender: FDA-Public Use
  Company Number: DSM-2011-00749

PATIENT
  Age: 84 Year
  Sex: Female

DRUGS (2)
  1. ASPIRIN [Suspect]
     Indication: PRODUCT USED FOR UNKNOWN INDICATION
     Dates: start: 20100517
  2. PLAUNAZIDE (HYDROCHLOROTHIAZIDE, OLMESARTN MEDOXOMIL) (TABLET) (HYDROC [Suspect]
     Indication: PRODUCT USED FOR UNKNOWN INDICATION
     Dosage: 20/12.5 MG, ORAL
     Route: 048
     Dates: start: 20100517

REACTIONS (3)
  - ASTHENIA [None]
  - BALANCE DISORDER [None]
  - VERTIGO [None]
